FAERS Safety Report 7089519-5 (Version None)
Quarter: 2010Q4

REPORT INFORMATION
  Report Type: 
  Country: None (occurrence: None)
  Receive Date: 20101108
  Receipt Date: 20101028
  Transmission Date: 20110411
  Serious: Yes (Other)
  Sender: FDA-Public Use
  Company Number: ES-JNJFOC-20100509967

PATIENT
  Age: 64 Year
  Sex: Male
  Weight: 87 kg

DRUGS (2)
  1. REMICADE [Suspect]
     Indication: PSORIATIC ARTHROPATHY
     Dosage: RECEIVED 8 DOSES
     Route: 042
  2. METHOTREXATE [Concomitant]
     Dosage: 10 - 20 MG
     Route: 048

REACTIONS (1)
  - MYCOSIS FUNGOIDES [None]
